FAERS Safety Report 8168102-4 (Version None)
Quarter: 2012Q1

REPORT INFORMATION
  Report Type: 
  Country: None (occurrence: None)
  Receive Date: 20120227
  Receipt Date: 20120217
  Transmission Date: 20120608
  Serious: Yes (Other)
  Sender: FDA-Public Use
  Company Number: PHHY2011HR37649

PATIENT
  Age: 60 Year
  Sex: Male

DRUGS (2)
  1. DICLOFENAC SODIUM [Suspect]
     Indication: OSTEOARTHRITIS
     Dosage: 100 MG, QD
     Dates: start: 20020101, end: 20020101
  2. DICLOFENAC SODIUM [Suspect]
     Dosage: 100 MG, QD
     Dates: start: 20040101, end: 20040101

REACTIONS (2)
  - NEPHROTIC SYNDROME [None]
  - OEDEMA PERIPHERAL [None]
